FAERS Safety Report 7428375-X (Version None)
Quarter: 2011Q2

REPORT INFORMATION
  Report Type: 
  Country: None (occurrence: None)
  Receive Date: 20110412
  Receipt Date: 20110406
  Transmission Date: 20111010
  Serious: Yes (Death, Other)
  Sender: FDA-Public Use
  Company Number: 2011SP007511

PATIENT
  Age: 57 Year
  Sex: Female

DRUGS (4)
  1. TEMODAL [Suspect]
     Indication: ANAPLASTIC ASTROCYTOMA
     Dosage: 120 MG QD,
  2. VASOCARDIN [Concomitant]
  3. ZAMLODAX [Concomitant]
  4. RAWEL [Concomitant]

REACTIONS (5)
  - NEUROLOGICAL EXAMINATION ABNORMAL [None]
  - LEUKOPENIA [None]
  - COGNITIVE DISORDER [None]
  - MOBILITY DECREASED [None]
  - THROMBOCYTOPENIA [None]
